FAERS Safety Report 9972067 (Version 1)
Quarter: 2014Q1

REPORT INFORMATION
  Report Type: Spontaneous
  Country: US (occurrence: None)
  Receive Date: 20140305
  Receipt Date: 20140305
  Transmission Date: 20141002
  Serious: Yes (Disabling)
  Sender: FDA-Public Use
  Company Number: None

PATIENT
  Age: 79 Year
  Sex: Male
  Weight: 79.38 kg

DRUGS (1)
  1. XOLAIR [Suspect]
     Dosage: GIVEN INTO/UNDER THE SKIN

REACTIONS (1)
  - Gynaecomastia [None]
